FAERS Safety Report 23609289 (Version 1)
Quarter: 2024Q1

REPORT INFORMATION
  Report Type: Spontaneous
  Country: US (occurrence: US)
  Receive Date: 20240308
  Receipt Date: 20240308
  Transmission Date: 20240410
  Serious: Yes (Other)
  Sender: FDA-Public Use
  Company Number: US-JNJFOC-20240306271

PATIENT
  Sex: Male

DRUGS (14)
  1. ELMIRON [Suspect]
     Active Substance: PENTOSAN POLYSULFATE SODIUM
     Indication: Cystitis interstitial
     Route: 048
     Dates: start: 20140112, end: 20200412
  2. ELMIRON [Suspect]
     Active Substance: PENTOSAN POLYSULFATE SODIUM
     Indication: Colitis
     Route: 048
  3. ATORVASTATIN [Concomitant]
     Active Substance: ATORVASTATIN
     Indication: Blood cholesterol
     Dates: start: 20140104, end: 20181128
  4. FOLIC ACID [Concomitant]
     Active Substance: FOLIC ACID
     Dates: start: 20140114, end: 20201127
  5. HYOSCYAMINE SULFATE [Concomitant]
     Active Substance: HYOSCYAMINE SULFATE
     Indication: Colitis
     Dates: start: 20150305, end: 20201108
  6. FINASTERIDE [Concomitant]
     Active Substance: FINASTERIDE
     Indication: Benign prostatic hyperplasia
     Dates: start: 20140114, end: 20200117
  7. ACETAZOLAMIDE [Concomitant]
     Active Substance: ACETAZOLAMIDE
     Indication: Open angle glaucoma
     Dates: start: 20161129, end: 20170615
  8. LIALDA [Concomitant]
     Active Substance: MESALAMINE
     Indication: Colitis
     Dates: start: 20140104, end: 20171018
  9. TIMOLOL [Concomitant]
     Active Substance: TIMOLOL
     Indication: Open angle glaucoma
     Dates: start: 20140114, end: 20171015
  10. AZOPT [Concomitant]
     Active Substance: BRINZOLAMIDE
     Indication: Open angle glaucoma
     Dates: start: 20140306, end: 20171018
  11. ALPHAGAN P [Concomitant]
     Active Substance: BRIMONIDINE TARTRATE
     Indication: Open angle glaucoma
     Dates: start: 20140114, end: 20171018
  12. TRAVATAN Z [Concomitant]
     Active Substance: TRAVOPROST
     Indication: Open angle glaucoma
     Dates: start: 20140123, end: 20170615
  13. DUREZOL [Concomitant]
     Active Substance: DIFLUPREDNATE
     Dates: start: 20170720, end: 20180531
  14. METHAZOLAMIDE [Concomitant]
     Active Substance: METHAZOLAMIDE
     Indication: Open angle glaucoma
     Dates: start: 20151119, end: 20170705

REACTIONS (4)
  - Macular degeneration [Not Recovered/Not Resolved]
  - Maculopathy [Unknown]
  - Anxiety [Not Recovered/Not Resolved]
  - Off label use [Unknown]

NARRATIVE: CASE EVENT DATE: 20160101
